FAERS Safety Report 9163535 (Version 1)
Quarter: 2012Q4

REPORT INFORMATION
  Report Type: 
  Country: US (occurrence: US)
  Receive Date: 20121206
  Receipt Date: 20121206
  Transmission Date: 20130627
  Serious: Yes (Other)
  Sender: FDA-Public Use
  Company Number: US-RB-047335-12

PATIENT
  Sex: Female

DRUGS (1)
  1. GENERIC BUPRENORPHINE [Suspect]
     Indication: DRUG DEPENDENCE
     Dosage: Dosing details unknown
     Route: 064
     Dates: end: 201208

REACTIONS (2)
  - Infantile colic [Unknown]
  - Foetal exposure during pregnancy [Recovered/Resolved]
